FAERS Safety Report 4913553-1 (Version None)
Quarter: 2006Q1

REPORT INFORMATION
  Report Type: 
  Country: None (occurrence: None)
  Receive Date: 20060216
  Receipt Date: 20060214
  Transmission Date: 20060701
  Serious: No
  Sender: FDA-Public Use
  Company Number: US-RB-2788-2006

PATIENT
  Age: 18 Year
  Sex: Male

DRUGS (2)
  1. SUBOXONE [Suspect]
  2. MARIJUANA [Concomitant]

REACTIONS (1)
  - DRUG ABUSER [None]
